FAERS Safety Report 6498899-0 (Version None)
Quarter: 2009Q4

REPORT INFORMATION
  Report Type: 
  Country: None (occurrence: None)
  Receive Date: 20091215
  Receipt Date: 20091204
  Transmission Date: 20100525
  Serious: Yes (Other)
  Sender: FDA-Public Use
  Company Number: US-PFIZER INC-2009287068

PATIENT
  Age: 43 Year
  Sex: Female
  Weight: 74.842 kg

DRUGS (2)
  1. CHANTIX [Suspect]
     Indication: SMOKING CESSATION THERAPY
     Dosage: UNK
     Route: 048
  2. CYMBALTA [Concomitant]

REACTIONS (3)
  - BIPOLAR II DISORDER [None]
  - DEPRESSION [None]
  - SELF INJURIOUS BEHAVIOUR [None]
